FAERS Safety Report 9034524 (Version 2)
Quarter: 2013Q1

REPORT INFORMATION
  Report Type: Spontaneous
  Country: SE (occurrence: SE)
  Receive Date: 20130128
  Receipt Date: 20130305
  Transmission Date: 20140127
  Serious: Yes (Hospitalization, Other)
  Sender: FDA-Public Use
  Company Number: SE-ASTRAZENECA-2013SE03805

PATIENT
  Age: 65 Year
  Sex: Male

DRUGS (7)
  1. BRILIQUE [Suspect]
     Indication: INFARCTION
     Route: 048
     Dates: start: 20121116
  2. BRILIQUE [Suspect]
     Indication: HYPERTONIA
     Route: 048
     Dates: start: 20121116
  3. OMEPRAZOL [Concomitant]
  4. METOPROLOL [Concomitant]
  5. RAMIPRIL [Concomitant]
  6. SIMVASTATIN [Concomitant]
  7. TROMBYL TABLET [Concomitant]

REACTIONS (1)
  - Hypoaesthesia [Not Recovered/Not Resolved]
